FAERS Safety Report 21811246 (Version 1)
Quarter: 2023Q1

REPORT INFORMATION
  Report Type: Spontaneous
  Country: NL (occurrence: None)
  Receive Date: 20230103
  Receipt Date: 20230103
  Transmission Date: 20230418
  Serious: Yes (Other)
  Sender: FDA-Public Use
  Company Number: None

PATIENT
  Sex: Female

DRUGS (2)
  1. METFORMIN [Suspect]
     Active Substance: METFORMIN HYDROCHLORIDE
     Indication: Gestational diabetes
     Dosage: 2X PER DAY 1X 1 TABLET 1X 2 TABLETS
     Dates: start: 20220920
  2. METFORMIN [Suspect]
     Active Substance: METFORMIN HYDROCHLORIDE
     Dosage: 2X PER DAY 1X 1 TABLET 1X 2 TABLETS
     Dates: start: 20220920

REACTIONS (2)
  - Placental insufficiency [Recovered/Resolved]
  - Maternal exposure during pregnancy [Unknown]
